FAERS Safety Report 9202007 (Version 1)
Quarter: 2013Q2

REPORT INFORMATION
  Report Type: Report from Study
  Country: FR (occurrence: FR)
  Receive Date: 20130401
  Receipt Date: 20130401
  Transmission Date: 20140414
  Serious: Yes (Hospitalization)
  Sender: FDA-Public Use
  Company Number: FR-ROCHE-796491

PATIENT
  Age: 51 Year
  Sex: Female

DRUGS (6)
  1. VEMURAFENIB [Suspect]
     Indication: METASTATIC MALIGNANT MELANOMA
     Route: 048
     Dates: start: 20110728, end: 20110810
  2. TOPALGIC [Concomitant]
     Route: 065
  3. PRIMPERAN (FRANCE) [Concomitant]
     Route: 065
  4. PARACETAMOL [Concomitant]
     Route: 065
  5. DITROPAN [Concomitant]
     Route: 065
  6. LOVENOX [Concomitant]
     Route: 065

REACTIONS (2)
  - Drug eruption [Recovered/Resolved]
  - Pyrexia [Unknown]
